FAERS Safety Report 10483491 (Version 1)
Quarter: 2014Q3

REPORT INFORMATION
  Report Type: Spontaneous
  Country: US (occurrence: None)
  Receive Date: 20140929
  Receipt Date: 20140929
  Transmission Date: 20150326
  Serious: Yes (Death)
  Sender: FDA-Public Use
  Company Number: None

PATIENT
  Age: 63 Year
  Sex: Male
  Weight: 166 kg

DRUGS (11)
  1. ASA [Concomitant]
     Active Substance: ASPIRIN
  2. NIACIN. [Concomitant]
     Active Substance: NIACIN
  3. PROSCAR [Concomitant]
     Active Substance: FINASTERIDE
  4. XARELTO [Suspect]
     Active Substance: RIVAROXABAN
     Indication: ATRIAL FIBRILLATION
     Route: 048
  5. CYANOCOBALAMIN. [Concomitant]
     Active Substance: CYANOCOBALAMIN
  6. AMBIEN [Concomitant]
     Active Substance: ZOLPIDEM TARTRATE
  7. FLOMAX [Concomitant]
     Active Substance: TAMSULOSIN HYDROCHLORIDE
  8. AMIODARONE [Concomitant]
     Active Substance: AMIODARONE
  9. CYMBALTA [Concomitant]
     Active Substance: DULOXETINE HYDROCHLORIDE
  10. CHOLECALCIFEROL [Concomitant]
     Active Substance: CHOLECALCIFEROL
  11. TRAMADOL [Concomitant]
     Active Substance: TRAMADOL

REACTIONS (5)
  - Fall [None]
  - International normalised ratio decreased [None]
  - Brain stem haemorrhage [None]
  - Convulsion [None]
  - Blood pressure systolic increased [None]

NARRATIVE: CASE EVENT DATE: 20140918
